FAERS Safety Report 6120160-4 (Version None)
Quarter: 2009Q1

REPORT INFORMATION
  Report Type: 
  Country: None (occurrence: None)
  Receive Date: 20090316
  Receipt Date: 20090209
  Transmission Date: 20090719
  Serious: No
  Sender: FDA-Public Use
  Company Number: US-ABBOTT-09P-163-0502562-00

PATIENT
  Sex: Female
  Weight: 71.732 kg

DRUGS (7)
  1. TRILIPIX [Suspect]
     Indication: BLOOD TRIGLYCERIDES INCREASED
     Dates: start: 20090101
  2. DIURETIC [Concomitant]
     Indication: SWELLING
  3. DIURETIC [Concomitant]
     Indication: BLOOD PRESSURE
  4. FOSAMAX [Concomitant]
     Indication: BONE DISORDER
     Dosage: 1/WK
  5. VIT [Concomitant]
     Indication: DRUG USE FOR UNKNOWN INDICATION
  6. OSCAL D [Concomitant]
     Indication: DRUG USE FOR UNKNOWN INDICATION
  7. ASPIRIN [Concomitant]
     Indication: DRUG USE FOR UNKNOWN INDICATION

REACTIONS (1)
  - HEADACHE [None]
